FAERS Safety Report 25721725 (Version 2)
Quarter: 2025Q3

REPORT INFORMATION
  Report Type: Spontaneous
  Country: US (occurrence: US)
  Receive Date: 20250825
  Receipt Date: 20250909
  Transmission Date: 20251021
  Serious: Yes (Hospitalization)
  Sender: TEVA
  Company Number: US-TEVA-VS-3364470

PATIENT
  Age: 20 Year
  Sex: Female

DRUGS (5)
  1. MYCOPHENOLATE MOFETIL [Suspect]
     Active Substance: MYCOPHENOLATE MOFETIL
     Indication: Lupus nephritis
     Dosage: PILL
     Route: 065
  2. MYCOPHENOLATE MOFETIL [Suspect]
     Active Substance: MYCOPHENOLATE MOFETIL
     Indication: Lupus nephritis
     Route: 065
  3. RITUXIMAB [Concomitant]
     Active Substance: RITUXIMAB
     Indication: Systemic lupus erythematosus
     Route: 065
  4. RITUXIMAB [Concomitant]
     Active Substance: RITUXIMAB
     Indication: Systemic lupus erythematosus
     Dosage: MONTHLY
     Route: 065
  5. CYCLOPHOSPHAMIDE [Suspect]
     Active Substance: CYCLOPHOSPHAMIDE
     Indication: Lupus nephritis
     Route: 065

REACTIONS (13)
  - Colitis [Recovering/Resolving]
  - Hypertension [Unknown]
  - Metabolic acidosis [Unknown]
  - Toxicity to various agents [Recovering/Resolving]
  - Treatment noncompliance [Unknown]
  - Drug intolerance [Unknown]
  - Immune thrombocytopenia [Unknown]
  - Posterior reversible encephalopathy syndrome [Unknown]
  - Diarrhoea [Recovered/Resolved]
  - Decreased appetite [Unknown]
  - Generalised oedema [Unknown]
  - Nausea [Unknown]
  - Pruritus allergic [Unknown]
